FAERS Safety Report 20484061 (Version 4)
Quarter: 2022Q2

REPORT INFORMATION
  Report Type: Spontaneous
  Country: NO (occurrence: NO)
  Receive Date: 20220217
  Receipt Date: 20220517
  Transmission Date: 20220721
  Serious: Yes (Other)
  Sender: FDA-Public Use
  Company Number: NO-BAYER-2022A023504

PATIENT
  Age: 74 Year
  Sex: Male

DRUGS (3)
  1. XOFIGO [Suspect]
     Active Substance: RADIUM RA-223 DICHLORIDE
     Indication: Hormone-refractory prostate cancer
     Dosage: UNK
     Dates: start: 20211103, end: 20211103
  2. XOFIGO [Suspect]
     Active Substance: RADIUM RA-223 DICHLORIDE
     Indication: Metastasis
     Dosage: UNK
     Dates: start: 20211201, end: 20211201
  3. XOFIGO [Suspect]
     Active Substance: RADIUM RA-223 DICHLORIDE
     Indication: Hormone-refractory prostate cancer
     Dosage: UNK
     Dates: start: 20211229, end: 20211229

REACTIONS (3)
  - Hormone-refractory prostate cancer [None]
  - Metastases to lung [None]
  - General physical health deterioration [None]

NARRATIVE: CASE EVENT DATE: 20220124
